FAERS Safety Report 10017563 (Version 2)
Quarter: 2014Q1

REPORT INFORMATION
  Report Type: Spontaneous
  Country: US (occurrence: US)
  Receive Date: 20140318
  Receipt Date: 20140318
  Transmission Date: 20141002
  Serious: No
  Sender: FDA-Public Use
  Company Number: US-BRISTOL-MYERS SQUIBB COMPANY-17343351

PATIENT
  Age: 58 Year
  Sex: Female
  Weight: 70.75 kg

DRUGS (6)
  1. ERBITUX [Suspect]
     Indication: COLON CANCER METASTATIC
     Dosage: INTERRUPTED ON 30-JAN-2013
     Route: 042
     Dates: start: 20130123
  2. IRINOTECAN HCL [Suspect]
     Dates: start: 20130123
  3. 5-FLUOROURACIL [Suspect]
     Dates: start: 20130123
  4. LEUCOVORIN [Suspect]
     Dates: start: 20130123
  5. HYDROCODONE [Concomitant]
  6. NIACIN [Concomitant]

REACTIONS (4)
  - Malaise [Unknown]
  - Rash pruritic [Recovering/Resolving]
  - Purpura [Not Recovered/Not Resolved]
  - Constipation [Unknown]
